FAERS Safety Report 4749696-5 (Version None)
Quarter: 2005Q3

REPORT INFORMATION
  Report Type: 
  Country: None (occurrence: None)
  Receive Date: 20050822
  Receipt Date: 20041104
  Transmission Date: 20060218
  Serious: Yes (Disabling)
  Sender: FDA-Public Use
  Company Number: US-ROCHE-385564

PATIENT
  Age: 17 Year
  Sex: Male
  Weight: 84.4 kg

DRUGS (3)
  1. ACCUTANE [Suspect]
     Indication: ACNE
     Route: 048
     Dates: start: 20000715
  2. ACCUTANE [Suspect]
     Route: 048
  3. ACCUTANE [Suspect]
     Route: 048
     Dates: end: 20010115

REACTIONS (20)
  - APPENDICITIS [None]
  - ARTHRALGIA [None]
  - BLOOD CHOLESTEROL INCREASED [None]
  - BONE PAIN [None]
  - CHEILITIS [None]
  - CHEST PAIN [None]
  - COLITIS [None]
  - CROHN'S DISEASE [None]
  - EPICONDYLITIS [None]
  - GASTROINTESTINAL DISORDER [None]
  - ILEITIS [None]
  - INFLAMMATORY BOWEL DISEASE [None]
  - INTESTINAL HAEMORRHAGE [None]
  - INTESTINAL OBSTRUCTION [None]
  - MYALGIA [None]
  - OSTEOCHONDROSIS [None]
  - RECTAL HAEMORRHAGE [None]
  - SPLENOMEGALY [None]
  - TINNITUS [None]
  - WEIGHT DECREASED [None]
